FAERS Safety Report 5160224-5 (Version None)
Quarter: 2006Q4

REPORT INFORMATION
  Report Type: 
  Country: None (occurrence: None)
  Receive Date: 20061120
  Receipt Date: 20051102
  Transmission Date: 20070319
  Serious: Yes (Other)
  Sender: FDA-Public Use
  Company Number: 2006-150303-NL

PATIENT
  Age: 25 Year
  Sex: Female
  Weight: 65.3 kg

DRUGS (3)
  1. NUVARING [Suspect]
     Indication: CONTRACEPTION
     Dosage: VAGINAL, 3 WEEKS IN  / 1 WEEK OUT
     Route: 067
     Dates: start: 20060601, end: 20061021
  2. NUVARING [Suspect]
     Indication: MENSTRUATION IRREGULAR
     Dosage: VAGINAL, 3 WEEKS IN  / 1 WEEK OUT
     Route: 067
     Dates: start: 20060601, end: 20061021
  3. LUNESTA [Concomitant]

REACTIONS (5)
  - BREAST TENDERNESS [None]
  - FATIGUE [None]
  - HOT FLUSH [None]
  - SUICIDAL IDEATION [None]
  - WEIGHT INCREASED [None]
